FAERS Safety Report 9970799 (Version 1)
Quarter: 2014Q1

REPORT INFORMATION
  Report Type: Report from Study
  Country: US (occurrence: US)
  Receive Date: 20140306
  Receipt Date: 20140306
  Transmission Date: 20141002
  Serious: No
  Sender: FDA-Public Use
  Company Number: US-ABBVIE-13P-163-1149633-00

PATIENT
  Age: 67 Year
  Sex: Male
  Weight: 120.31 kg

DRUGS (17)
  1. HUMIRA [Suspect]
     Indication: PSORIASIS
     Dates: start: 20130830, end: 20130830
  2. HUMIRA [Suspect]
     Indication: PSORIATIC ARTHROPATHY
     Dates: start: 20130904, end: 20130905
  3. BENICAR HCT [Concomitant]
     Indication: HYPERTENSION
  4. AMLODIPINE BENAZEPRIL [Concomitant]
     Indication: PRODUCT USED FOR UNKNOWN INDICATION
  5. GABAPENTIN [Concomitant]
     Indication: NEURALGIA
  6. TESTIM 1% [Concomitant]
     Indication: BLOOD TESTOSTERONE DECREASED
  7. VITAMIN C [Concomitant]
     Indication: SUPPLEMENTATION THERAPY
  8. HYDROCODONE [Concomitant]
     Indication: PAIN
  9. OSTEOBIFLEX [Concomitant]
     Indication: SUPPLEMENTATION THERAPY
  10. KRILL OIL [Concomitant]
     Indication: SUPPLEMENTATION THERAPY
  11. MAGNESIUM [Concomitant]
     Indication: SUPPLEMENTATION THERAPY
  12. VITAMIN B12 [Concomitant]
     Indication: SUPPLEMENTATION THERAPY
  13. MULTIPLE VITAMINS [Concomitant]
     Indication: SUPPLEMENTATION THERAPY
  14. ASPIRIN [Concomitant]
     Indication: THROMBOSIS PROPHYLAXIS
  15. CLOBETASOL [Concomitant]
     Indication: PRODUCT USED FOR UNKNOWN INDICATION
  16. KETACONAZOLE SHAMPOO [Concomitant]
     Indication: PRODUCT USED FOR UNKNOWN INDICATION
  17. DERMASMOOTH FS SCALPAL [Concomitant]
     Indication: PRODUCT USED FOR UNKNOWN INDICATION

REACTIONS (5)
  - Feeling hot [Recovered/Resolved]
  - Chest discomfort [Recovered/Resolved]
  - Rash papular [Recovered/Resolved]
  - Injection site erythema [Recovered/Resolved]
  - Drug eruption [Not Recovered/Not Resolved]
